FAERS Safety Report 18913998 (Version 2)
Quarter: 2021Q1

REPORT INFORMATION
  Report Type: Spontaneous
  Country: CH (occurrence: CH)
  Receive Date: 20210218
  Receipt Date: 20210319
  Transmission Date: 20210420
  Serious: Yes (Other)
  Sender: FDA-Public Use
  Company Number: CH-009507513-2102CHE006085

PATIENT
  Age: 0 Year
  Sex: Male
  Weight: 3.77 kg

DRUGS (6)
  1. POLYDEXA WITH PHENYLEPHRINE [Suspect]
     Active Substance: DEXAMETHASONE SODIUM METASULFOBENZOATE\NEOMYCIN SULFATE\PHENYLEPHRINE HYDROCHLORIDE\POLYMYXIN B SULFATE
     Dosage: 2 DOSAGE FORM, TID
     Route: 045
     Dates: start: 20191226, end: 20200102
  2. AERIUS (DESLORATADINE) [Suspect]
     Active Substance: DESLORATADINE
     Dosage: 1 DOSAGE FORM, QD
     Dates: start: 20200110, end: 20200115
  3. RHINOFLUIMUCIL [Suspect]
     Active Substance: ACETYLCYSTEINE\BENZALKONIUM CHLORIDE\TUAMINOHEPTANE SULFATE
     Dosage: 1 DOSAGE FORM, TID
     Dates: start: 20191226, end: 20200102
  4. RHINOFLUIMUCIL [Suspect]
     Active Substance: ACETYLCYSTEINE\BENZALKONIUM CHLORIDE\TUAMINOHEPTANE SULFATE
     Dosage: 1 DOSAGE FORM, TID
     Dates: start: 20200110, end: 20200115
  5. AERIUS (DESLORATADINE) [Suspect]
     Active Substance: DESLORATADINE
     Dosage: 1 DOSAGE FORM, QD
     Dates: start: 20191226, end: 20200102
  6. POLYDEXA WITH PHENYLEPHRINE [Suspect]
     Active Substance: DEXAMETHASONE SODIUM METASULFOBENZOATE\NEOMYCIN SULFATE\PHENYLEPHRINE HYDROCHLORIDE\POLYMYXIN B SULFATE
     Dosage: 2 DOSAGE FORM
     Route: 045
     Dates: start: 20200110, end: 20200115

REACTIONS (1)
  - Exposure during pregnancy [Recovered/Resolved]

NARRATIVE: CASE EVENT DATE: 20191226
